FAERS Safety Report 12646037 (Version 1)
Quarter: 2016Q3

REPORT INFORMATION
  Report Type: Spontaneous
  Country: US (occurrence: US)
  Receive Date: 20160811
  Receipt Date: 20160811
  Transmission Date: 20161109
  Serious: Yes (Hospitalization, Other)
  Sender: FDA-Public Use
  Company Number: US-BAUSCH-BL-2016-019301

PATIENT
  Sex: Female

DRUGS (2)
  1. XIFAXAN [Suspect]
     Active Substance: RIFAXIMIN
     Indication: PRODUCT USED FOR UNKNOWN INDICATION
     Route: 065
  2. XIFAXAN [Suspect]
     Active Substance: RIFAXIMIN
     Route: 065
     Dates: start: 20160714

REACTIONS (7)
  - Confusional state [Unknown]
  - Ammonia increased [Unknown]
  - Condition aggravated [Unknown]
  - Spinal compression fracture [Unknown]
  - Drug dose omission [Unknown]
  - Hepatic cirrhosis [Unknown]
  - Asthenia [Unknown]
